FAERS Safety Report 6849139-1 (Version None)
Quarter: 2010Q3

REPORT INFORMATION
  Report Type: 
  Country: None (occurrence: None)
  Receive Date: 20100716
  Receipt Date: 20100706
  Transmission Date: 20110219
  Serious: Yes (Other)
  Sender: FDA-Public Use
  Company Number: PHHY2010US45137

PATIENT
  Sex: Female

DRUGS (1)
  1. EXJADE [Suspect]
     Indication: ACUTE MONOCYTIC LEUKAEMIA
     Dosage: 1000 MG, TID
     Route: 048
     Dates: start: 20100413

REACTIONS (2)
  - HELICOBACTER INFECTION [None]
  - ULCER [None]
